FAERS Safety Report 5983129-6 (Version None)
Quarter: 2008Q4

REPORT INFORMATION
  Report Type: 
  Country: None (occurrence: None)
  Receive Date: 20081208
  Receipt Date: 20081201
  Transmission Date: 20090506
  Serious: Yes (Death)
  Sender: FDA-Public Use
  Company Number: FR-AVENTIS-200814257FR

PATIENT
  Age: 55 Year
  Sex: Male

DRUGS (3)
  1. TAXOTERE [Suspect]
     Indication: HEAD AND NECK CANCER
     Route: 042
     Dates: start: 20081101, end: 20081101
  2. CISPLATIN [Concomitant]
     Indication: HEAD AND NECK CANCER
     Route: 042
     Dates: start: 20081101, end: 20081101
  3. FLUOROURACIL [Concomitant]
     Indication: HEAD AND NECK CANCER
     Route: 042
     Dates: start: 20081101, end: 20081101

REACTIONS (4)
  - BONE MARROW FAILURE [None]
  - DIARRHOEA [None]
  - ENTEROCOLITIS HAEMORRHAGIC [None]
  - PYREXIA [None]
